FAERS Safety Report 4836776-9 (Version None)
Quarter: 2005Q4

REPORT INFORMATION
  Report Type: 
  Country: None (occurrence: None)
  Receive Date: 20051123
  Receipt Date: 20051117
  Transmission Date: 20060501
  Serious: Yes (Hospitalization)
  Sender: FDA-Public Use
  Company Number: US-MERCK-0511USA03238

PATIENT
  Age: 54 Year
  Sex: Female
  Weight: 67 kg

DRUGS (7)
  1. VIOXX [Suspect]
     Indication: ARTHRALGIA
     Route: 048
     Dates: start: 20030613, end: 20040801
  2. NEURONTIN [Concomitant]
     Indication: NEURALGIA
     Route: 065
  3. NEXIUM [Concomitant]
     Route: 065
  4. PERCOCET [Concomitant]
     Route: 065
  5. PLAVIX [Concomitant]
     Route: 065
  6. ASPIRIN [Concomitant]
     Route: 065
  7. LIPITOR [Concomitant]
     Route: 065

REACTIONS (1)
  - TRANSIENT ISCHAEMIC ATTACK [None]
